FAERS Safety Report 10090763 (Version 2)
Quarter: 2015Q3

REPORT INFORMATION
  Report Type: Spontaneous
  Country: US (occurrence: US)
  Receive Date: 20140421
  Receipt Date: 20150812
  Transmission Date: 20151125
  Serious: No
  Sender: FDA-Public Use
  Company Number: US-GILEAD-2012-0059420

PATIENT
  Age: 64 Year
  Sex: Female

DRUGS (1)
  1. LETAIRIS [Suspect]
     Active Substance: AMBRISENTAN
     Indication: PRODUCT USED FOR UNKNOWN INDICATION
     Dosage: 10 MG, UNK
     Route: 048
     Dates: start: 20120305

REACTIONS (6)
  - Dyspnoea [Unknown]
  - Oedema [Unknown]
  - Contusion [Unknown]
  - Abdominal distension [Unknown]
  - Unevaluable event [Unknown]
  - Skin atrophy [Unknown]
